FAERS Safety Report 19718482 (Version 1)
Quarter: 2021Q3

REPORT INFORMATION
  Report Type: Spontaneous
  Country: DE (occurrence: DE)
  Receive Date: 20210819
  Receipt Date: 20210819
  Transmission Date: 20211014
  Serious: Yes (Hospitalization, Other)
  Sender: FDA-Public Use
  Company Number: DE-PFIZER INC-202100995484

PATIENT
  Age: 61 Year
  Sex: Male
  Weight: 85 kg

DRUGS (14)
  1. ACETYLSALICYLIC ACID [Concomitant]
     Active Substance: ASPIRIN
     Dosage: 100 MG, 1?0?0?0, TABLETS
     Route: 048
  2. LORAZEPAM. [Concomitant]
     Active Substance: LORAZEPAM
     Dosage: 2.5 MG, IF NECESSARY A MAXIMUM OF 2 TABLETS PER DAY, ORODISPERSIBLE TABLETS
     Route: 060
  3. PANTOPRAZOL [PANTOPRAZOLE] [Concomitant]
     Active Substance: PANTOPRAZOLE
     Dosage: 40 MG, 1?0?0?0, TABLET
     Route: 048
  4. KALINOR [CITRIC ACID;POTASSIUM BICARBONATE;POTASSIUM CITRATE] [Concomitant]
     Active Substance: CITRIC ACID MONOHYDRATE\POTASSIUM BICARBONATE\POTASSIUM CITRATE
     Dosage: 2500 | 1565.66 MG, 1?0?0?0, EFFERVESCENT TABLET
     Route: 048
  5. PROPRANOLOL [Concomitant]
     Active Substance: PROPRANOLOL HYDROCHLORIDE
     Dosage: 10 MG, 1?0?1?0, TABLET
     Route: 048
  6. TORASEMID [Suspect]
     Active Substance: TORSEMIDE
     Dosage: 20 MG TABLET AT 10 MG, 1X/DAY (0.5?0?0?0),
     Route: 048
  7. XIPAMID [Suspect]
     Active Substance: XIPAMIDE
     Dosage: 20 MG, 1?0?0?0, TABLET
     Route: 048
  8. ORNITHINE ASPARTATE [Concomitant]
     Active Substance: ORNITHINE ASPARTATE
     Dosage: 3 G, 1?0?0?0, GRANULES
     Route: 048
  9. ROFLUMILAST. [Concomitant]
     Active Substance: ROFLUMILAST
     Dosage: 0.5 MG, 1?0?0?0, TABLET
     Route: 048
  10. BERODUAL [Concomitant]
     Active Substance: FENOTEROL HYDROBROMIDE\IPRATROPIUM BROMIDE
     Dosage: 0.02 | 0.05 ?G, IF REQUIRED, METERED DOSE INHALER
     Route: 055
  11. EPLERENONE. [Suspect]
     Active Substance: EPLERENONE
     Dosage: 50 MG, 1?0?0?0, TABLET
     Route: 048
  12. ULTIBRO BREEZHALER [GLYCOPYRRONIUM BROMIDE;INDACATEROL MALEATE] [Concomitant]
     Active Substance: GLYCOPYRRONIUM\INDACATEROL
     Dosage: 50 | 110 ?G, 1?0?0?0, CAPSULES FOR INHALATION
     Route: 055
  13. NALOXONE HYDROCHLORIDE/OXYCODONE HYDROCHLORIDE [Concomitant]
     Active Substance: NALOXONE HYDROCHLORIDE\OXYCODONE HYDROCHLORIDE
     Dosage: 5 | 10 MG, IF NECESSARY A MAXIMUM OF TWO TABLETS PER DAY, PROLONGED?RELEASE TABLET
     Route: 048
  14. AMIODARON [AMIODARONE] [Concomitant]
     Active Substance: AMIODARONE
     Dosage: 200 MG, 1?0?0?0, TABLET
     Route: 048

REACTIONS (9)
  - Weight decreased [Unknown]
  - General physical health deterioration [Unknown]
  - Fluid intake reduced [Unknown]
  - Constipation [Unknown]
  - Angina pectoris [Unknown]
  - Nausea [Unknown]
  - Product prescribing error [Unknown]
  - Fatigue [Unknown]
  - Dizziness [Unknown]
